FAERS Safety Report 6530046-9 (Version None)
Quarter: 2010Q1

REPORT INFORMATION
  Report Type: 
  Country: None (occurrence: None)
  Receive Date: 20100107
  Receipt Date: 20100104
  Transmission Date: 20100710
  Serious: Yes (Hospitalization, Disabling)
  Sender: FDA-Public Use
  Company Number: US-GILEAD-2010-0026289

PATIENT
  Sex: Male
  Weight: 86.7 kg

DRUGS (13)
  1. LETAIRIS [Suspect]
     Indication: PULMONARY ARTERIAL HYPERTENSION
     Route: 048
     Dates: start: 20071009, end: 20091230
  2. LISINOPRIL [Concomitant]
  3. ZOCOR [Concomitant]
  4. LASIX [Concomitant]
  5. ASPIRIN [Concomitant]
  6. LEVITRA [Concomitant]
  7. LEXAPRO [Concomitant]
  8. DESOXIMETAS [Concomitant]
  9. LYRICA [Concomitant]
  10. TRAMADOL [Concomitant]
  11. UROXATRAL [Concomitant]
  12. TAC [Concomitant]
  13. FOLIC ACID [Concomitant]

REACTIONS (1)
  - DYSPHAGIA [None]
